FAERS Safety Report 12292628 (Version 1)
Quarter: 2016Q2

REPORT INFORMATION
  Report Type: Report from Study
  Country: US (occurrence: US)
  Receive Date: 20160421
  Receipt Date: 20160421
  Transmission Date: 20160815
  Serious: No
  Sender: FDA-Public Use
  Company Number: US-AMGEN-USASL2016012071

PATIENT
  Age: 66 Year
  Sex: Female
  Weight: 86.17 kg

DRUGS (1)
  1. REPATHA [Suspect]
     Active Substance: EVOLOCUMAB
     Indication: HYPERLIPIDAEMIA
     Dosage: 140 MG, Q2WK
     Route: 058
     Dates: start: 20160201

REACTIONS (8)
  - Musculoskeletal stiffness [Unknown]
  - Arthralgia [Unknown]
  - Cough [Recovering/Resolving]
  - Flatulence [Unknown]
  - Injection site pain [Recovering/Resolving]
  - Headache [Recovering/Resolving]
  - Gastroenteritis [Unknown]
  - Myalgia [Unknown]

NARRATIVE: CASE EVENT DATE: 201602
